FAERS Safety Report 8487147-8 (Version None)
Quarter: 2012Q3

REPORT INFORMATION
  Report Type: 
  Country: None (occurrence: None)
  Receive Date: 20120704
  Receipt Date: 20120624
  Transmission Date: 20120928
  Serious: Yes (Other)
  Sender: FDA-Public Use
  Company Number: US-BRISTOL-MYERS SQUIBB COMPANY-16708786

PATIENT
  Age: 36 Year
  Sex: Female

DRUGS (10)
  1. BUPROPION HCL [Suspect]
     Indication: MENTAL DISORDER
  2. LOXAPINE [Suspect]
     Indication: MENTAL DISORDER
  3. CIPROFLOXACIN HYDROCHLORIDE [Concomitant]
  4. LITHIUM CARBONATE [Suspect]
     Indication: MENTAL DISORDER
  5. SERTRALINE HYDROCHLORIDE [Suspect]
     Indication: MENTAL DISORDER
  6. LAMOTRGINE [Suspect]
     Indication: MENTAL DISORDER
  7. TRAZODONE HCL [Suspect]
     Indication: MENTAL DISORDER
  8. ONDANSETRON [Suspect]
  9. VENLAFAXINE HCL [Suspect]
     Indication: MENTAL DISORDER
  10. ACETAMINOPHEN [Concomitant]

REACTIONS (1)
  - NEUROLEPTIC MALIGNANT SYNDROME [None]
